FAERS Safety Report 6627639-7 (Version None)
Quarter: 2010Q1

REPORT INFORMATION
  Report Type: 
  Country: None (occurrence: None)
  Receive Date: 20100308
  Receipt Date: 20100301
  Transmission Date: 20100710
  Serious: Yes (Hospitalization)
  Sender: FDA-Public Use
  Company Number: MYVW-PR-1002S-0013

PATIENT
  Age: 52 Year
  Sex: Male

DRUGS (6)
  1. MYOVIEW [Suspect]
     Indication: CHEST PAIN
     Dosage: 1110 MBQ, SINGLE DOSE, I.V.; 1221 MBQ, SINGLE DOSE I.V.
     Route: 042
     Dates: start: 20100129, end: 20100129
  2. MYOVIEW [Suspect]
     Indication: CHEST PAIN
     Dosage: 1110 MBQ, SINGLE DOSE, I.V.; 1221 MBQ, SINGLE DOSE I.V.
     Route: 042
     Dates: start: 20100130, end: 20100130
  3. MYOVIEW [Suspect]
     Indication: DYSPNOEA
  4. MYOVIEW [Suspect]
     Indication: CORONARY ARTERY DISEASE
  5. MYOVIEW [Suspect]
  6. TECHNETIUM (TC99M) GENERATOR (MANF. UNKNOWN) SODIUM PERTECHNETATE TC99 [Concomitant]

REACTIONS (3)
  - ENTEROBACTER INFECTION [None]
  - NOSOCOMIAL INFECTION [None]
  - TREMOR [None]
